FAERS Safety Report 6139088-9 (Version None)
Quarter: 2009Q1

REPORT INFORMATION
  Report Type: 
  Country: None (occurrence: None)
  Receive Date: 20090324
  Receipt Date: 20090319
  Transmission Date: 20090719
  Serious: Yes (Death, Other)
  Sender: FDA-Public Use
  Company Number: 2009SP006266

PATIENT
  Age: 56 Year
  Sex: Male

DRUGS (7)
  1. TEMODAR [Suspect]
     Indication: GLIOBLASTOMA MULTIFORME
     Dosage: 75 MG/M2; QD; 150 MG/M2;
  2. DOXIL (PEGYLATED LIPOSOMAL DOXORUBICIN HCL) [Suspect]
     Indication: GLIOBLASTOMA MULTIFORME
     Dosage: 20 MG/M2; QOW;
  3. THALIDOMIDE [Suspect]
     Indication: GLIOBLASTOMA MULTIFORME
     Dosage: 300 MG;QD
  4. TAMOXIFEN CITRATE [Suspect]
     Indication: GLIOBLASTOMA MULTIFORME
     Dosage: 200 MG;QD
  5. AVASTIN [Suspect]
     Indication: GLIOBLASTOMA MULTIFORME
     Dosage: 10 MG/MG;QOW; 10 MG/KG;QOW
  6. IRINOTECAN HCL [Suspect]
     Indication: GLIOBLASTOMA MULTIFORME
     Dosage: 125 MG/M2;QOW;
  7. KEPPRA (CON.) [Concomitant]

REACTIONS (6)
  - DECUBITUS ULCER [None]
  - DISEASE PROGRESSION [None]
  - HAEMATOTOXICITY [None]
  - INTRACRANIAL PRESSURE INCREASED [None]
  - NEUTROPENIA [None]
  - THROMBOCYTOPENIA [None]
